FAERS Safety Report 5688426-X (Version None)
Quarter: 2008Q1

REPORT INFORMATION
  Report Type: 
  Country: None (occurrence: None)
  Receive Date: 20080328
  Receipt Date: 20080328
  Transmission Date: 20080703
  Serious: Yes (Other)
  Sender: FDA-Public Use
  Company Number: None

PATIENT
  Sex: Male

DRUGS (1)
  1. VARENICLINE   STARTER PACK [Suspect]
     Indication: SMOKING CESSATION THERAPY
     Dates: start: 20080125, end: 20080215

REACTIONS (2)
  - DEPRESSION [None]
  - MOOD ALTERED [None]
